FAERS Safety Report 24707934 (Version 1)
Quarter: 2024Q4

REPORT INFORMATION
  Report Type: Report from Study
  Country: US (occurrence: US)
  Receive Date: 20241206
  Receipt Date: 20241206
  Transmission Date: 20250114
  Serious: Yes (Death, Hospitalization, Other)
  Sender: MERCK
  Company Number: US-009507513-2306USA012550

PATIENT
  Age: 80 Year
  Sex: Male

DRUGS (3)
  1. JANUVIA [Suspect]
     Active Substance: SITAGLIPTIN PHOSPHATE
     Indication: Diabetes mellitus
     Dosage: 100 MG ONCE A DAY
     Route: 048
     Dates: start: 202207
  2. SIMVASTATIN [Concomitant]
     Active Substance: SIMVASTATIN
  3. XARELTO [Concomitant]
     Active Substance: RIVAROXABAN

REACTIONS (8)
  - Death [Fatal]
  - Peritonsillar abscess [Unknown]
  - Renal failure [Unknown]
  - Intestinal obstruction [Unknown]
  - Aspiration [Unknown]
  - Gastroenteritis viral [Unknown]
  - Product dose omission issue [Unknown]
  - Treatment noncompliance [Unknown]

NARRATIVE: CASE EVENT DATE: 20230512
